FAERS Safety Report 20379222 (Version 1)
Quarter: 2022Q1

REPORT INFORMATION
  Report Type: Spontaneous
  Country: CN (occurrence: None)
  Receive Date: 20220126
  Receipt Date: 20220126
  Transmission Date: 20220424
  Serious: Yes (Other)
  Sender: FDA-Public Use
  Company Number: CN-ROCHE-3005750

PATIENT
  Age: 50 Year
  Sex: Male

DRUGS (12)
  1. MABTHERA [Suspect]
     Active Substance: RITUXIMAB
     Indication: Chronic lymphocytic leukaemia
     Route: 065
     Dates: start: 20191019
  2. MABTHERA [Suspect]
     Active Substance: RITUXIMAB
     Indication: Marginal zone lymphoma stage IV
  3. CYCLOPHOSPHAMIDE [Concomitant]
     Active Substance: CYCLOPHOSPHAMIDE
     Indication: Chronic lymphocytic leukaemia
     Route: 065
     Dates: start: 20191019
  4. CYCLOPHOSPHAMIDE [Concomitant]
     Active Substance: CYCLOPHOSPHAMIDE
     Indication: Marginal zone lymphoma stage IV
  5. IBRUTINIB [Concomitant]
     Active Substance: IBRUTINIB
     Indication: Chronic lymphocytic leukaemia
     Route: 065
     Dates: start: 20191019
  6. IBRUTINIB [Concomitant]
     Active Substance: IBRUTINIB
     Indication: Marginal zone lymphoma stage IV
  7. LENALIDOMIDE [Concomitant]
     Active Substance: LENALIDOMIDE
     Indication: Chronic lymphocytic leukaemia
     Route: 065
     Dates: start: 20200205
  8. LENALIDOMIDE [Concomitant]
     Active Substance: LENALIDOMIDE
     Indication: Marginal zone lymphoma stage IV
  9. FLUDARABINE [Concomitant]
     Active Substance: FLUDARABINE PHOSPHATE
     Indication: Chronic lymphocytic leukaemia
     Route: 065
     Dates: start: 20191019
  10. FLUDARABINE [Concomitant]
     Active Substance: FLUDARABINE PHOSPHATE
     Indication: Marginal zone lymphoma stage IV
  11. PREDNISONE [Concomitant]
     Active Substance: PREDNISONE
     Indication: Chronic lymphocytic leukaemia
     Route: 065
     Dates: start: 20200624
  12. PREDNISONE [Concomitant]
     Active Substance: PREDNISONE
     Indication: Marginal zone lymphoma stage IV
     Route: 065
     Dates: start: 20200823

REACTIONS (12)
  - Onycholysis [Unknown]
  - Pyrexia [Unknown]
  - Septic shock [Unknown]
  - Fungal sepsis [Unknown]
  - Myelosuppression [Unknown]
  - Anaemia [Unknown]
  - Renal failure [Unknown]
  - Pneumonia [Unknown]
  - Aplasia pure red cell [Unknown]
  - Immune thrombocytopenia [Unknown]
  - Off label use [Unknown]
  - Intentional product use issue [Unknown]
